FAERS Safety Report 4393552-1 (Version None)
Quarter: 2004Q3

REPORT INFORMATION
  Report Type: 
  Country: None (occurrence: None)
  Receive Date: 20040706
  Receipt Date: 20040706
  Transmission Date: 20050211
  Serious: Yes (Life-Threatening, Hospitalization)
  Sender: FDA-Public Use
  Company Number: None

PATIENT
  Age: 55 Year
  Sex: Female
  Weight: 87 kg

DRUGS (2)
  1. LINEZOLID (ZYVOX)  600MG IV AND PO Q12H [Suspect]
     Indication: WOUND INFECTION STAPHYLOCOCCAL
     Dosage: 600 MG IV/PO Q12H
     Dates: start: 20040701, end: 20040704
  2. CITALOPRAM [Suspect]
     Indication: DEPRESSION
     Dosage: 10 MG PO BID
     Route: 048

REACTIONS (2)
  - PSYCHOTIC DISORDER [None]
  - SEROTONIN SYNDROME [None]
